FAERS Safety Report 5892838-9 (Version None)
Quarter: 2008Q3

REPORT INFORMATION
  Report Type: 
  Country: None (occurrence: None)
  Receive Date: 20080923
  Receipt Date: 20080805
  Transmission Date: 20090109
  Serious: No
  Sender: FDA-Public Use
  Company Number: US-BAYER-200824174NA

PATIENT
  Age: 64 Year
  Sex: Female
  Weight: 67 kg

DRUGS (1)
  1. CLIMARA PRO [Suspect]
     Indication: HORMONE REPLACEMENT THERAPY
     Route: 062

REACTIONS (5)
  - APPLICATION SITE ULCER [None]
  - FATIGUE [None]
  - GENITAL HAEMORRHAGE [None]
  - HOT FLUSH [None]
  - WEIGHT INCREASED [None]
